FAERS Safety Report 4543143-4 (Version None)
Quarter: 2004Q4

REPORT INFORMATION
  Report Type: 
  Country: None (occurrence: None)
  Receive Date: 20041230
  Receipt Date: 20041230
  Transmission Date: 20050328
  Serious: Yes (Life-Threatening, Hospitalization)
  Sender: FDA-Public Use
  Company Number: None

PATIENT
  Age: 29 Year
  Sex: Female
  Weight: 102.0593 kg

DRUGS (4)
  1. PAXIL [Suspect]
     Indication: MAJOR DEPRESSION
     Dosage: ORAL
     Route: 048
     Dates: start: 20030701, end: 20030801
  2. CELEXA [Concomitant]
  3. WELLBUTRIN XL [Concomitant]
  4. NEXIUM [Concomitant]

REACTIONS (7)
  - ABNORMAL BEHAVIOUR [None]
  - INTENTIONAL OVERDOSE [None]
  - INTENTIONAL SELF-INJURY [None]
  - REGRESSIVE BEHAVIOUR [None]
  - SLEEP DISORDER [None]
  - SUICIDE ATTEMPT [None]
  - TREMOR [None]
